FAERS Safety Report 12290800 (Version 2)
Quarter: 2016Q3

REPORT INFORMATION
  Report Type: Spontaneous
  Country: US (occurrence: US)
  Receive Date: 20160421
  Receipt Date: 20160728
  Transmission Date: 20161109
  Serious: No
  Sender: FDA-Public Use
  Company Number: US-PFIZER INC-2016204800

PATIENT
  Age: 61 Year
  Sex: Female
  Weight: 114 kg

DRUGS (7)
  1. GLIPIZIDE. [Suspect]
     Active Substance: GLIPIZIDE
     Dosage: UNK
  2. DIAZEPAM. [Concomitant]
     Active Substance: DIAZEPAM
     Indication: DEPRESSION
     Dosage: 5 MG, 3X/DAY
     Route: 048
     Dates: start: 1985
  3. TYLENOL [Concomitant]
     Active Substance: ACETAMINOPHEN
     Indication: ARTHRITIS
     Dosage: 1300 MG, 2X/DAY, 650MG TWO TWICE A DAY
     Route: 048
     Dates: start: 1998
  4. CLONIDINE. [Concomitant]
     Active Substance: CLONIDINE
     Indication: HEART DISEASE CONGENITAL
     Dosage: 0.1 MG, 2X/DAY
     Route: 048
     Dates: start: 2014
  5. TRAMADOL. [Concomitant]
     Active Substance: TRAMADOL
     Indication: PAIN
     Dosage: 100 MG, UNK, 50MG CAPLETS BY MOUTH TWO EVERY 6 HOURS
     Route: 048
     Dates: start: 2012
  6. AMLODIPINE [Concomitant]
     Active Substance: AMLODIPINE BESYLATE
     Indication: CARDIAC DISORDER
     Dosage: 10 MG, 1X/DAY, AT NIGHT
     Route: 048
     Dates: start: 2014
  7. DIAZEPAM. [Concomitant]
     Active Substance: DIAZEPAM
     Indication: STRESS

REACTIONS (1)
  - Drug effect incomplete [Unknown]
